FAERS Safety Report 23529455 (Version 3)
Quarter: 2024Q2

REPORT INFORMATION
  Report Type: Spontaneous
  Country: US (occurrence: US)
  Receive Date: 20240216
  Receipt Date: 20240515
  Transmission Date: 20240716
  Serious: No
  Sender: FDA-Public Use
  Company Number: US-BIOGEN-2023BI01236585

PATIENT
  Age: 66 Year
  Sex: Male

DRUGS (2)
  1. TYSABRI [Suspect]
     Active Substance: NATALIZUMAB
     Indication: Multiple sclerosis
     Route: 050
     Dates: start: 20090407
  2. TYSABRI [Suspect]
     Active Substance: NATALIZUMAB
     Route: 050

REACTIONS (3)
  - Prescribed underdose [Not Recovered/Not Resolved]
  - Joint injury [Not Recovered/Not Resolved]
  - Peroneal nerve palsy [Unknown]

NARRATIVE: CASE EVENT DATE: 20231001
